FAERS Safety Report 6754102-5 (Version None)
Quarter: 2010Q2

REPORT INFORMATION
  Report Type: 
  Country: None (occurrence: None)
  Receive Date: 20100527
  Receipt Date: 20100518
  Transmission Date: 20101027
  Serious: Yes (Other)
  Sender: FDA-Public Use
  Company Number: 2010SP027709

PATIENT
  Age: 11 Year
  Sex: Female

DRUGS (2)
  1. IMPLANON [Suspect]
     Indication: CONTRACEPTION
     Dosage: SBDE
     Route: 059
     Dates: start: 20100127
  2. MOTRIN [Concomitant]

REACTIONS (3)
  - BACK PAIN [None]
  - HAEMATEMESIS [None]
  - MENSTRUATION IRREGULAR [None]
